FAERS Safety Report 9238179 (Version 2)
Quarter: 2013Q2

REPORT INFORMATION
  Report Type: Spontaneous
  Country: US (occurrence: None)
  Receive Date: 20130415
  Receipt Date: 20130513
  Transmission Date: 20140414
  Serious: Yes (Hospitalization)
  Sender: FDA-Public Use
  Company Number: ACO_35328_2013

PATIENT
  Age: 48 Year
  Sex: Male

DRUGS (6)
  1. AMPYRA (DALFAMPRIDINE) TABLET, 10MG [Suspect]
     Indication: GAIT DISTURBANCE
     Route: 048
  2. TYSABRI (NATALIZUMAB) [Suspect]
     Indication: PRODUCT USED FOR UNKNOWN INDICATION
     Route: 042
     Dates: start: 200907
  3. TYSABRI (NATALIZUMAB) [Suspect]
     Route: 042
     Dates: start: 200907
  4. LEXAPRO (ESCITALOPRAM OXALATE) [Concomitant]
  5. BACLOFEN [Concomitant]
  6. CRESTOR (ROSUVASTATIN CALCIUM) [Concomitant]

REACTIONS (4)
  - Immune system disorder [None]
  - Influenza [None]
  - Diarrhoea [None]
  - Multiple sclerosis relapse [None]
